FAERS Safety Report 7511176-1 (Version None)
Quarter: 2011Q2

REPORT INFORMATION
  Report Type: 
  Country: None (occurrence: None)
  Receive Date: 20110531
  Receipt Date: 20091011
  Transmission Date: 20111010
  Serious: Yes (Hospitalization, Other)
  Sender: FDA-Public Use
  Company Number: US-BAYER-200936275NA

PATIENT
  Age: 73 Year
  Sex: Female
  Weight: 103 kg

DRUGS (13)
  1. KEFLEX [Concomitant]
     Dosage: 500 MG, TID
     Route: 048
  2. VANCOMYCIN [Concomitant]
     Dosage: 1 G, UNK
     Route: 042
     Dates: start: 20060308
  3. QUININE SULFATE [Concomitant]
     Indication: MUSCLE SPASMS
     Dosage: 260 MG, QD
     Route: 048
  4. TRASYLOL [Suspect]
     Indication: CORONARY ARTERY BYPASS
     Dosage: 0.5 ML, INITIAL DOSE
     Route: 042
     Dates: start: 20060308, end: 20060308
  5. CADUET [Concomitant]
     Dosage: 5/10; 1 TABLET DAILY
     Route: 048
  6. EPINEPHRINE [Concomitant]
     Dosage: 15 CC/HR
     Route: 042
     Dates: start: 20060308
  7. RED BLOOD CELLS [Concomitant]
     Dosage: 4 U, UNK
     Route: 042
     Dates: start: 20060308
  8. BENICAR HCT [Concomitant]
     Dosage: 40/12.5; 1 TABLET EVERY MORNING
     Route: 048
  9. HEPARIN [Concomitant]
     Dosage: 500 CC
     Route: 042
     Dates: start: 20060308
  10. PLATELETS [Concomitant]
     Dosage: 2 U, UNK
     Route: 042
     Dates: start: 20060308
  11. TRASYLOL [Suspect]
     Indication: MITRAL VALVE REPAIR
  12. COUMADIN [Concomitant]
     Dosage: 5 MG, QD
     Route: 048
  13. DOBUTAMINE HYDROCHLORIDE [Concomitant]
     Dosage: 500MG/ 250ML

REACTIONS (8)
  - DEPRESSION [None]
  - ANHEDONIA [None]
  - FEAR [None]
  - PAIN [None]
  - ANXIETY [None]
  - RENAL FAILURE [None]
  - INJURY [None]
  - UNEVALUABLE EVENT [None]
